FAERS Safety Report 10262067 (Version 1)
Quarter: 2014Q2

REPORT INFORMATION
  Report Type: Spontaneous
  Country: US (occurrence: None)
  Receive Date: 20140624
  Receipt Date: 20140624
  Transmission Date: 20141212
  Serious: Yes (Hospitalization, Other)
  Sender: FDA-Public Use
  Company Number: None

PATIENT
  Age: 75 Year
  Sex: Male
  Weight: 110.9 kg

DRUGS (2)
  1. SULFAMETHOXAZOLE/TRIMETHOPRIM [Suspect]
     Indication: RENAL FAILURE ACUTE
     Route: 048
     Dates: start: 20140325, end: 20140410
  2. SULFAMETHOXAZOLE/TRIMETHOPRIM [Suspect]
     Indication: HYPERKALAEMIA
     Route: 048
     Dates: start: 20140325, end: 20140410

REACTIONS (4)
  - Urine flow decreased [None]
  - Oedema peripheral [None]
  - Renal failure [None]
  - Hyperkalaemia [None]
